FAERS Safety Report 6440631-0 (Version None)
Quarter: 2009Q4

REPORT INFORMATION
  Report Type: 
  Country: None (occurrence: None)
  Receive Date: 20091116
  Receipt Date: 20091102
  Transmission Date: 20100525
  Serious: Yes (Hospitalization, Other)
  Sender: FDA-Public Use
  Company Number: PHBS2007IE02883

PATIENT
  Age: 6 Year
  Sex: Male

DRUGS (12)
  1. SIMULECT [Suspect]
     Indication: RENAL TRANSPLANT
     Dosage: 10 MG, ONCE/SINGLE
     Route: 042
     Dates: start: 20060622, end: 20060622
  2. TACROLIMUS [Concomitant]
     Indication: RENAL TRANSPLANT
  3. MYCOPHENOLATE MOFETIL [Concomitant]
     Indication: RENAL TRANSPLANT
  4. RANITIDINE [Concomitant]
  5. METHYLPREDNISOLONE [Concomitant]
  6. STEROIDS NOS [Concomitant]
  7. GANCICLOVIR [Concomitant]
  8. AMOXICILLIN AND CLAVULANATE POTASSIUM [Concomitant]
  9. FRUSEMIDE [Concomitant]
     Dosage: 2 MG/KG PER DOSE
  10. FLUCONAZOLE [Concomitant]
  11. CEFTAZIDIME [Concomitant]
  12. ONDANSETRON [Concomitant]

REACTIONS (5)
  - ACUTE RESPIRATORY DISTRESS SYNDROME [None]
  - C-REACTIVE PROTEIN INCREASED [None]
  - MECHANICAL VENTILATION [None]
  - NON-CARDIOGENIC PULMONARY OEDEMA [None]
  - RESPIRATORY FAILURE [None]
